FAERS Safety Report 7032192-2 (Version None)
Quarter: 2010Q4

REPORT INFORMATION
  Report Type: 
  Country: None (occurrence: None)
  Receive Date: 20101005
  Receipt Date: 20100722
  Transmission Date: 20110411
  Serious: Yes (Other)
  Sender: FDA-Public Use
  Company Number: 00000278

PATIENT
  Age: 75 Year
  Sex: Female

DRUGS (3)
  1. ZOLPIDEM TARTRATE [Suspect]
     Dosage: 1
     Dates: start: 20100622, end: 20100705
  2. SEROQUEL [Concomitant]
  3. XANAX [Concomitant]

REACTIONS (6)
  - FALL [None]
  - LOSS OF CONSCIOUSNESS [None]
  - MOVEMENT DISORDER [None]
  - NIGHTMARE [None]
  - PARALYSIS [None]
  - URINARY INCONTINENCE [None]
